FAERS Safety Report 7086848-6 (Version None)
Quarter: 2010Q4

REPORT INFORMATION
  Report Type: 
  Country: None (occurrence: None)
  Receive Date: 20101105
  Receipt Date: 20101025
  Transmission Date: 20110411
  Serious: Yes (Life-Threatening, Hospitalization, Other)
  Sender: FDA-Public Use
  Company Number: JP-AMGEN-US221967

PATIENT

DRUGS (13)
  1. ENBREL [Suspect]
     Indication: RHEUMATOID ARTHRITIS
     Dosage: 25 MG, 2 TIMES/WK
     Route: 058
     Dates: start: 20060912, end: 20060919
  2. OLOPATADINE HYDROCHLORIDE [Concomitant]
     Dosage: 10 MG, QD
     Route: 048
     Dates: start: 20060815
  3. LOXOPROFEN [Concomitant]
     Dosage: UNK UNK, UNK
     Route: 048
     Dates: start: 20050815
  4. LOXOPROFEN [Concomitant]
     Dosage: 50 MG
     Route: 048
     Dates: start: 20050815
  5. BAKTAR [Concomitant]
     Indication: PNEUMOCYSTIS JIROVECI PNEUMONIA
     Dosage: 8 UNK, QWK
     Route: 048
     Dates: start: 20060907
  6. ZOPICLONE [Concomitant]
     Dosage: UNK UNK, UNK
     Route: 048
     Dates: start: 20060911, end: 20060915
  7. ZOPICLONE [Concomitant]
     Dosage: 7.5 MG
     Route: 048
     Dates: start: 20060911, end: 20060915
  8. BROTIZOLAM [Concomitant]
     Dosage: UNK UNK, UNK
     Route: 048
     Dates: start: 20060915
  9. BROTIZOLAM [Concomitant]
     Dosage: 0.25 MG
     Route: 048
     Dates: start: 20060915
  10. PREDNISOLONE [Concomitant]
     Indication: STILL'S DISEASE ADULT ONSET
     Dosage: UNK UNK, UNK
     Route: 048
     Dates: start: 20060822
  11. PREDNISOLONE [Concomitant]
     Dosage: UNKNOWN
     Route: 048
     Dates: start: 20060822
  12. MUCOSTA [Concomitant]
     Indication: GASTRITIS
     Route: 048
     Dates: start: 20060822
  13. BONALON [Concomitant]
     Indication: OSTEOPOROSIS
     Route: 048
     Dates: start: 20060902

REACTIONS (6)
  - CONDITION AGGRAVATED [None]
  - CYTOMEGALOVIRUS INFECTION [None]
  - DISSEMINATED INTRAVASCULAR COAGULATION [None]
  - HEPATIC FAILURE [None]
  - HISTIOCYTOSIS HAEMATOPHAGIC [None]
  - STILL'S DISEASE ADULT ONSET [None]
